FAERS Safety Report 8521475-2 (Version None)
Quarter: 2012Q3

REPORT INFORMATION
  Report Type: 
  Country: None (occurrence: None)
  Receive Date: 20120719
  Receipt Date: 20120711
  Transmission Date: 20120928
  Serious: Yes (Hospitalization, Disabling, Other)
  Sender: FDA-Public Use
  Company Number: US-009507513-1203USA03374

PATIENT

DRUGS (4)
  1. CALCIUM (UNSPECIFIED) [Concomitant]
     Indication: OSTEOPOROSIS
     Dosage: 1 G, QD
  2. FOSAMAX [Suspect]
     Indication: OSTEOPOROSIS
     Dosage: 10 MG, UNK
     Route: 048
     Dates: start: 19960822, end: 20010126
  3. FOSAMAX [Suspect]
     Dosage: 70 MG, QW
     Route: 048
     Dates: start: 20020321, end: 20080827
  4. MK-9278 [Concomitant]
     Indication: OSTEOPOROSIS
     Dosage: UNK UNK, QD

REACTIONS (33)
  - DIVERTICULITIS [None]
  - OEDEMA PERIPHERAL [None]
  - OSTEOPENIA [None]
  - BLADDER DISORDER [None]
  - HYPOTHYROIDISM [None]
  - FATIGUE [None]
  - NAUSEA [None]
  - ANXIETY [None]
  - BREAST DISORDER [None]
  - UTERINE PROLAPSE [None]
  - NECK PAIN [None]
  - CHEST PAIN [None]
  - LETHARGY [None]
  - SPINAL FRACTURE [None]
  - LOW TURNOVER OSTEOPATHY [None]
  - ASTHENIA [None]
  - NOCTURIA [None]
  - HYPERLIPIDAEMIA [None]
  - ENTEROCOLITIS INFECTIOUS [None]
  - MUSCULOSKELETAL PAIN [None]
  - POOR QUALITY SLEEP [None]
  - FUNCTIONAL GASTROINTESTINAL DISORDER [None]
  - DEPRESSION [None]
  - CONSTIPATION [None]
  - PERIORBITAL HAEMORRHAGE [None]
  - POLYP COLORECTAL [None]
  - OSTEOARTHRITIS [None]
  - APATHY [None]
  - FEMUR FRACTURE [None]
  - DRUG INEFFECTIVE [None]
  - ESSENTIAL HYPERTENSION [None]
  - LACERATION [None]
  - CALCULUS URETERIC [None]
